FAERS Safety Report 10023854 (Version 1)
Quarter: 2014Q1

REPORT INFORMATION
  Report Type: Spontaneous
  Country: US (occurrence: None)
  Receive Date: 20140122
  Receipt Date: 20140122
  Transmission Date: 20141002
  Serious: Yes (Hospitalization, Other)
  Sender: FDA-Public Use
  Company Number: 13-05068

PATIENT
  Sex: Female
  Weight: 28.12 kg

DRUGS (5)
  1. ALBUTEROL SULFATE INHALATION SOLUTION [Suspect]
     Indication: CYSTIC FIBROSIS
     Dosage: VIAL, QID 054
     Dates: start: 201309, end: 201310
  2. PULMOZYME [Concomitant]
  3. HYPERTONIC SOLUTION [Concomitant]
  4. NASACORT [Concomitant]
  5. MULTIVITAMIN [Concomitant]

REACTIONS (7)
  - Lung infection [None]
  - Nausea [None]
  - Weight decreased [None]
  - Decreased appetite [None]
  - Local swelling [None]
  - Joint swelling [None]
  - Gait disturbance [None]
